FAERS Safety Report 7224460-6 (Version None)
Quarter: 2011Q1

REPORT INFORMATION
  Report Type: 
  Country: None (occurrence: None)
  Receive Date: 20110113
  Receipt Date: 20110105
  Transmission Date: 20110831
  Serious: Yes (Life-Threatening, Hospitalization, Other)
  Sender: FDA-Public Use
  Company Number: US-BAXTER-2010BH029291

PATIENT
  Age: 66 Year
  Sex: Male
  Weight: 127 kg

DRUGS (3)
  1. GAMMAGARD S/D [Suspect]
     Indication: OFF LABEL USE
     Route: 042
     Dates: start: 20010205, end: 20090210
  2. GAMMAGARD S/D [Suspect]
     Indication: CONGENITAL NEUROPATHY
     Route: 042
     Dates: start: 20010205, end: 20090210
  3. SYNTHROID [Concomitant]
     Indication: THYROIDECTOMY
     Route: 048
     Dates: start: 19750101

REACTIONS (5)
  - TYPE 2 DIABETES MELLITUS [None]
  - OPEN WOUND [None]
  - THROMBOSIS [None]
  - PULMONARY EMBOLISM [None]
  - NEPHROLITHIASIS [None]
